FAERS Safety Report 21879825 (Version 1)
Quarter: 2023Q1

REPORT INFORMATION
  Report Type: Spontaneous
  Country: US (occurrence: US)
  Receive Date: 20230118
  Receipt Date: 20230118
  Transmission Date: 20230417
  Serious: Yes (Death, Other)
  Sender: FDA-Public Use
  Company Number: US-GLENMARK PHARMACEUTICALS-2023GMK077720

PATIENT
  Age: 32 Week
  Sex: Male

DRUGS (8)
  1. SIROLIMUS [Suspect]
     Active Substance: SIROLIMUS
     Indication: Venolymphatic malformation
     Dosage: 0.8 MILLIGRAM PER SQUARE METRE, QD, 0.14 MG ORAL SOLUTION (ON DAY 8)
     Route: 042
  2. SIROLIMUS [Suspect]
     Active Substance: SIROLIMUS
     Dosage: 0.8 MILLIGRAM PER SQUARE METRE, QD, 0.18 MG ORAL SOLUTION (2 MONTHS)
     Route: 042
  3. SIROLIMUS [Suspect]
     Active Substance: SIROLIMUS
     Dosage: 0.8 MILLIGRAM PER SQUARE METRE, QD, 0.22 MG ORAL SOLUTION (DAY 75)
     Route: 042
  4. SIROLIMUS [Suspect]
     Active Substance: SIROLIMUS
     Dosage: 0.3 MILLIGRAM, QD, 0.3 MG ORAL SOLUTION (DAY 83)
     Route: 042
  5. SIROLIMUS [Suspect]
     Active Substance: SIROLIMUS
     Dosage: 0.4 MILLIGRAM, QD, 0.4 MG ORAL SOLUTION (DAY 118)
     Route: 042
  6. DOXYCYCLINE [Concomitant]
     Active Substance: DOXYCYCLINE
     Indication: Sclerotherapy
     Dosage: 150 MILLIGRAM (DAY 6)
     Route: 042
  7. DOXYCYCLINE [Concomitant]
     Active Substance: DOXYCYCLINE
     Indication: Venolymphatic malformation
     Dosage: 300 MILLIGRAM, PER TREATMENT DOSING
     Route: 042
  8. PENTAMIDINE [Concomitant]
     Active Substance: PENTAMIDINE
     Indication: Pneumocystis jirovecii pneumonia
     Dosage: UNK
     Route: 042

REACTIONS (1)
  - Pulmonary haemorrhage [Fatal]
